FAERS Safety Report 8781993 (Version 1)
Quarter: 2012Q4

REPORT INFORMATION
  Report Type: 
  Country: US (occurrence: US)
  Receive Date: 20120913
  Receipt Date: 20120913
  Transmission Date: 20130627
  Serious: No
  Sender: FDA-Public Use
  Company Number: US-VERTEX PHARMACEUTICAL INC.-2012-020098

PATIENT
  Age: 58 Year
  Sex: Male

DRUGS (12)
  1. VX-950 [Suspect]
     Indication: HEPATITIS C
     Dosage: 750 mg, tid
     Route: 048
  2. PEGASYS [Concomitant]
     Indication: HEPATITIS C
  3. RIBAPAK [Concomitant]
     Indication: HEPATITIS C
     Dosage: UNK, qd
  4. CELEBREX [Concomitant]
     Dosage: 50 mg, UNK
  5. AMLODIPINE [Concomitant]
     Dosage: 2.5 mg, UNK
  6. CARVEDILOL [Concomitant]
     Dosage: 3.125 mg, UNK
  7. OMEPRAZOLE [Concomitant]
     Dosage: 20 mg, UNK
  8. IBUPROFEN [Concomitant]
     Dosage: 200 mg, UNK
  9. DIPHENHYDRAMINE [Concomitant]
     Dosage: 25 mg, UNK
  10. CRESTOR [Concomitant]
     Dosage: 5 mg, UNK
  11. LOSARTAN [Concomitant]
     Dosage: 25 mg, UNK
  12. ASPIRIN [Concomitant]
     Dosage: 81 mg, UNK

REACTIONS (4)
  - Dizziness [Unknown]
  - Fatigue [Unknown]
  - Asthenia [Unknown]
  - Anaemia [Unknown]
